FAERS Safety Report 6468303-7 (Version None)
Quarter: 2009Q4

REPORT INFORMATION
  Report Type: 
  Country: None (occurrence: None)
  Receive Date: 20091124
  Receipt Date: 20091109
  Transmission Date: 20100525
  Serious: Yes (Other)
  Sender: FDA-Public Use
  Company Number: 2009296672

PATIENT
  Age: 34 Year
  Sex: Female
  Weight: 50 kg

DRUGS (1)
  1. DALTEPARIN SODIUM [Suspect]
     Indication: ANTICOAGULANT THERAPY
     Dosage: 5000 IU, 2X/DAY, SUBCUTANEOUS ;8.75 IU/KG, 2X/DAY, SUBCUTANEOUS
     Route: 058

REACTIONS (2)
  - CARDIAC VALVE DISEASE [None]
  - PULMONARY OEDEMA [None]
